FAERS Safety Report 6153754-0 (Version None)
Quarter: 2009Q2

REPORT INFORMATION
  Report Type: 
  Country: None (occurrence: None)
  Receive Date: 20090410
  Receipt Date: 20090401
  Transmission Date: 20091009
  Serious: Yes (Disabling)
  Sender: FDA-Public Use
  Company Number: APP200800741

PATIENT
  Age: 15 Year
  Sex: Female
  Weight: 54 kg

DRUGS (6)
  1. SENSORCAINE [Suspect]
     Indication: MUSCULOSKELETAL PAIN
     Dosage: 150 ML, CONTINUOUS VIA PAIN PUMP, INTRA-ARTICULAR
     Route: 014
     Dates: start: 20040802
  2. SENSORCAINE [Suspect]
     Indication: MUSCULOSKELETAL PAIN
     Dosage: 150 ML, CONTINUOUS VIA PAIN PUMP, INTRA-ARTICULAR
     Route: 014
     Dates: start: 20040802
  3. BUPIVACAINE HYDROCHLORIDE AND EPINEPHRINE [Suspect]
     Indication: LOCAL ANAESTHESIA
     Dosage: 20 ML
     Dates: start: 20040802
  4. SODIUM CHLORIDE 0.9% [Concomitant]
  5. SODIUM CHLORIDE [Concomitant]
  6. LACTATED RINGERS (FLEBOBAG RING LACT) [Concomitant]

REACTIONS (14)
  - ADHESION [None]
  - ARTHRALGIA [None]
  - CHONDROLYSIS [None]
  - CREPITATIONS [None]
  - CYST [None]
  - EFFUSION [None]
  - MUSCLE CONTRACTURE [None]
  - MUSCULOSKELETAL PAIN [None]
  - MUSCULOSKELETAL STIFFNESS [None]
  - OSTEOCHONDROSIS [None]
  - ROTATOR CUFF SYNDROME [None]
  - SYNOVITIS [None]
  - TENDON INJURY [None]
  - TREATMENT NONCOMPLIANCE [None]
